FAERS Safety Report 19546451 (Version 1)
Quarter: 2021Q3

REPORT INFORMATION
  Report Type: Spontaneous
  Country: DE (occurrence: CN)
  Receive Date: 20210714
  Receipt Date: 20210714
  Transmission Date: 20211014
  Serious: Yes (Death, Other)
  Sender: FDA-Public Use
  Company Number: CN-ELI_LILLY_AND_COMPANY-CN202107004716

PATIENT
  Age: 25 Year
  Sex: Male

DRUGS (8)
  1. CALCIUM FOLINATE [Concomitant]
     Active Substance: LEUCOVORIN CALCIUM
     Indication: RECTAL CANCER METASTATIC
     Dosage: UNK, UNKNOWN
     Route: 065
     Dates: start: 20200625, end: 20200710
  2. CALCIUM FOLINATE [Concomitant]
     Active Substance: LEUCOVORIN CALCIUM
     Dosage: UNK, UNKNOWN
     Route: 065
     Dates: start: 2020
  3. FLUOROURACIL. [Suspect]
     Active Substance: FLUOROURACIL
     Indication: RECTAL CANCER METASTATIC
     Dosage: UNK, UNKNOWN
     Route: 065
     Dates: start: 20200625, end: 20200710
  4. OXALIPLATIN. [Concomitant]
     Active Substance: OXALIPLATIN
     Dosage: UNK UNK, UNKNOWN
     Route: 065
     Dates: start: 2020
  5. FLUOROURACIL. [Suspect]
     Active Substance: FLUOROURACIL
     Dosage: UNK, UNKNOWN
     Route: 065
     Dates: start: 2020
  6. ERBITUX [Suspect]
     Active Substance: CETUXIMAB
     Indication: RECTAL CANCER METASTATIC
     Dosage: 500 MG/M2, UNK
     Route: 065
     Dates: start: 2020
  7. ERBITUX [Suspect]
     Active Substance: CETUXIMAB
     Dosage: 250 MG/M2, WEEKLY (1/W)
     Route: 065
     Dates: start: 2002
  8. OXALIPLATIN. [Concomitant]
     Active Substance: OXALIPLATIN
     Indication: RECTAL CANCER METASTATIC
     Dosage: UNK
     Dates: start: 20200625, end: 20200710

REACTIONS (9)
  - Disseminated intravascular coagulation [Fatal]
  - Transaminases increased [Unknown]
  - Rash [Fatal]
  - Chest pain [Unknown]
  - Back pain [Unknown]
  - Off label use [Unknown]
  - Hyperammonaemic encephalopathy [Unknown]
  - White blood cell count increased [Unknown]
  - Neutrophil count increased [Unknown]
